FAERS Safety Report 18088203 (Version 1)
Quarter: 2020Q3

REPORT INFORMATION
  Report Type: Spontaneous
  Country: US (occurrence: US)
  Receive Date: 20200729
  Receipt Date: 20200729
  Transmission Date: 20201103
  Serious: Yes (Hospitalization)
  Sender: FDA-Public Use
  Company Number: US-MAYNE PHARMA-2019MYN000661

PATIENT

DRUGS (2)
  1. METOPROLOL. [Concomitant]
     Active Substance: METOPROLOL
     Indication: PRODUCT USED FOR UNKNOWN INDICATION
  2. DOFETILIDE. [Suspect]
     Active Substance: DOFETILIDE
     Indication: ATRIAL FIBRILLATION
     Dosage: 250 ?G, BID
     Route: 048
     Dates: start: 201907, end: 20190812

REACTIONS (4)
  - Atrial fibrillation [Unknown]
  - Nausea [Unknown]
  - Vomiting [Unknown]
  - Drug ineffective [Unknown]

NARRATIVE: CASE EVENT DATE: 2019
